FAERS Safety Report 15170300 (Version 1)
Quarter: 2018Q3

REPORT INFORMATION
  Report Type: Spontaneous
  Country: JP (occurrence: JP)
  Receive Date: 20180720
  Receipt Date: 20180720
  Transmission Date: 20181010
  Serious: Yes (Other)
  Sender: FDA-Public Use
  Company Number: JP-009507513-1807JPN001241J

PATIENT
  Age: 74 Year
  Sex: Male
  Weight: 58 kg

DRUGS (3)
  1. SOVALDI [Suspect]
     Active Substance: SOFOSBUVIR
     Indication: CHRONIC HEPATITIS C
     Dosage: 1 DF, UNKNOWN
     Route: 065
     Dates: start: 20151204, end: 20151211
  2. NEXIUM [Concomitant]
     Active Substance: ESOMEPRAZOLE MAGNESIUM
     Indication: CHRONIC HEPATITIS C
     Route: 065
  3. REBETOL [Suspect]
     Active Substance: RIBAVIRIN
     Indication: CHRONIC HEPATITIS C
     Dosage: 600 MG, UNK
     Route: 065
     Dates: start: 20151204, end: 20151211

REACTIONS (3)
  - Drug ineffective [Unknown]
  - Hepatitis C [Unknown]
  - Abdominal pain upper [Unknown]
